FAERS Safety Report 16833344 (Version 1)
Quarter: 2019Q3

REPORT INFORMATION
  Report Type: Spontaneous
  Country: US (occurrence: US)
  Receive Date: 20190731
  Receipt Date: 20190731
  Transmission Date: 20191005
  Serious: No
  Sender: FDA-Public Use
  Company Number: None

PATIENT

DRUGS (2)
  1. LOSARTAN (LOSARTIN) 100MG [Suspect]
     Active Substance: LOSARTAN
     Route: 048
  2. LOSARTAN 25MG [Suspect]
     Active Substance: LOSARTAN
     Route: 048

REACTIONS (5)
  - Tremor [None]
  - Dizziness [None]
  - Product dispensing error [None]
  - Incorrect dose administered [None]
  - Nausea [None]
